FAERS Safety Report 19069327 (Version 1)
Quarter: 2021Q1

REPORT INFORMATION
  Report Type: Spontaneous
  Country: US (occurrence: US)
  Receive Date: 20210326
  Receipt Date: 20210326
  Transmission Date: 20210420
  Serious: Yes (Hospitalization)
  Sender: FDA-Public Use
  Company Number: None

PATIENT
  Age: 54 Year
  Sex: Male
  Weight: 97 kg

DRUGS (1)
  1. PRAZOSIN (PRAZOSIN HCL 5MG CAP) [Suspect]
     Active Substance: PRAZOSIN HYDROCHLORIDE
     Indication: POST-TRAUMATIC STRESS DISORDER
     Dates: start: 20200807, end: 20200916

REACTIONS (3)
  - Hypotension [None]
  - Head injury [None]
  - Syncope [None]

NARRATIVE: CASE EVENT DATE: 20201208
